FAERS Safety Report 11866029 (Version 1)
Quarter: 2015Q4

REPORT INFORMATION
  Report Type: Spontaneous
  Country: US (occurrence: US)
  Receive Date: 20151223
  Receipt Date: 20151223
  Transmission Date: 20160305
  Serious: No
  Sender: FDA-Public Use
  Company Number: US-PFIZER INC-2015416912

PATIENT
  Age: 52 Year
  Sex: Male
  Weight: 86 kg

DRUGS (1)
  1. SUTENT [Suspect]
     Active Substance: SUNITINIB MALATE
     Indication: NEOPLASM MALIGNANT
     Dosage: 1 DF, DAILY (1 PILL A DAY)

REACTIONS (1)
  - Malaise [Recovered/Resolved]
